FAERS Safety Report 25867561 (Version 1)
Quarter: 2025Q4

REPORT INFORMATION
  Report Type: Other
  Country: EU (occurrence: EU)
  Receive Date: 20251001
  Receipt Date: 20251001
  Transmission Date: 20260118
  Serious: Yes (Other)
  Sender: Atnahs Healthcare
  Company Number: None

PATIENT

DRUGS (1)
  1. DIAZEPAM [Suspect]
     Active Substance: DIAZEPAM
     Indication: Product used for unknown indication
     Dosage: 5 MG X2/DAY
     Route: 048
     Dates: start: 20230306

REACTIONS (1)
  - Drug use disorder [Not Recovered/Not Resolved]
